FAERS Safety Report 23155033 (Version 1)
Quarter: 2023Q4

REPORT INFORMATION
  Report Type: Report from Study
  Country: CA (occurrence: CA)
  Receive Date: 20231107
  Receipt Date: 20231107
  Transmission Date: 20240110
  Serious: Yes (Hospitalization)
  Sender: FDA-Public Use
  Company Number: CA-Eisai-EC-2023-133576

PATIENT
  Age: 44 Year
  Sex: Female
  Weight: 70.3 kg

DRUGS (5)
  1. LENVIMA [Suspect]
     Active Substance: LENVATINIB
     Indication: Endometrial cancer
     Route: 048
     Dates: start: 20230201, end: 202302
  2. LENVIMA [Suspect]
     Active Substance: LENVATINIB
     Route: 048
     Dates: start: 20230207, end: 2023
  3. KEYTRUDA [Suspect]
     Active Substance: PEMBROLIZUMAB
     Indication: Endometrial cancer metastatic
     Route: 041
     Dates: start: 20230201, end: 20230315
  4. KEYTRUDA [Suspect]
     Active Substance: PEMBROLIZUMAB
     Route: 041
     Dates: start: 20230419, end: 2023
  5. KEYTRUDA [Suspect]
     Active Substance: PEMBROLIZUMAB
     Route: 041
     Dates: start: 20230530

REACTIONS (13)
  - Gastrointestinal perforation [Unknown]
  - Dyspnoea [Unknown]
  - Tachycardia [Unknown]
  - Hypertension [Unknown]
  - Blood test abnormal [Unknown]
  - Fordyce spots [Unknown]
  - Fatigue [Unknown]
  - Lumbar vertebral fracture [Unknown]
  - Dry mouth [Recovered/Resolved]
  - Anaemia [Recovered/Resolved]
  - Pain [Unknown]
  - Postoperative wound infection [Recovered/Resolved]
  - Hysterectomy [Recovered/Resolved]

NARRATIVE: CASE EVENT DATE: 20230201
